FAERS Safety Report 18125311 (Version 2)
Quarter: 2020Q4

REPORT INFORMATION
  Report Type: Report from Study
  Country: US (occurrence: US)
  Receive Date: 20200807
  Receipt Date: 20201012
  Transmission Date: 20210113
  Serious: Yes (Other)
  Sender: FDA-Public Use
  Company Number: US-NOVOPROD-732623

PATIENT
  Age: 71 Year
  Sex: Female

DRUGS (1)
  1. LEVEMIR [Suspect]
     Active Substance: INSULIN DETEMIR
     Indication: DIABETES MELLITUS
     Dosage: 10 IU
     Route: 058

REACTIONS (9)
  - Asthenia [Unknown]
  - Device failure [Unknown]
  - Loss of consciousness [Recovered/Resolved]
  - Blood glucose increased [Unknown]
  - Pruritus [Unknown]
  - Device malfunction [Not Recovered/Not Resolved]
  - Peripheral swelling [Unknown]
  - Dyspnoea [Unknown]
  - Incorrect dose administered by device [Not Recovered/Not Resolved]

NARRATIVE: CASE EVENT DATE: 20200518
